FAERS Safety Report 11672580 (Version 1)
Quarter: 2015Q4

REPORT INFORMATION
  Report Type: Spontaneous
  Country: GB (occurrence: GB)
  Receive Date: 20151028
  Receipt Date: 20151028
  Transmission Date: 20160304
  Serious: Yes (Disabling)
  Sender: FDA-Public Use
  Company Number: GB-TEVA-602615ACC

PATIENT
  Age: 65 Year
  Sex: Female

DRUGS (2)
  1. DULOXETINE. [Suspect]
     Active Substance: DULOXETINE
     Indication: DIABETIC NEUROPATHY
     Dosage: 60 MILLIGRAM DAILY;
     Route: 048
  2. PREGABALIN. [Concomitant]
     Active Substance: PREGABALIN
     Indication: DIABETIC NEUROPATHY
     Dosage: 300 MILLIGRAM DAILY;
     Route: 048

REACTIONS (5)
  - Memory impairment [Unknown]
  - Muscular weakness [Unknown]
  - Confusional state [Unknown]
  - Loss of control of legs [Unknown]
  - Restless legs syndrome [Unknown]
